FAERS Safety Report 9293729 (Version 2)
Quarter: 2013Q2

REPORT INFORMATION
  Report Type: Spontaneous
  Country: GB (occurrence: GB)
  Receive Date: 20130516
  Receipt Date: 20130516
  Transmission Date: 20140414
  Serious: Yes (Other)
  Sender: FDA-Public Use
  Company Number: GB-ASTRAZENECA-2013SE29360

PATIENT
  Age: 20872 Day
  Sex: Male

DRUGS (7)
  1. PLENDIL [Suspect]
     Indication: HYPERTENSION
     Route: 048
     Dates: start: 20130108, end: 20130424
  2. MAGNESIUM STEARATE [Suspect]
     Route: 065
  3. PREDNISOLONE [Concomitant]
     Indication: GOUT
     Route: 048
  4. PREDNISOLONE [Concomitant]
     Indication: HYPERSENSITIVITY
     Route: 048
  5. PREDNISOLONE [Concomitant]
     Indication: GOUT
     Route: 048
     Dates: start: 20130424
  6. PREDNISOLONE [Concomitant]
     Indication: HYPERSENSITIVITY
     Route: 048
     Dates: start: 20130424
  7. CO-AMOXICLAV [Concomitant]
     Indication: INFECTION
     Dosage: 5 MILLILITERS THREE TIMES DAILY X 1/52
     Route: 048

REACTIONS (2)
  - Vasculitic rash [Unknown]
  - Hypersensitivity [Unknown]
